FAERS Safety Report 11146392 (Version 5)
Quarter: 2019Q4

REPORT INFORMATION
  Report Type: Spontaneous
  Country: US (occurrence: US)
  Receive Date: 20150528
  Receipt Date: 20191002
  Transmission Date: 20200122
  Serious: Yes (Other)
  Sender: FDA-Public Use
  Company Number: US-PFIZER INC-2015169067

PATIENT
  Age: 63 Year
  Sex: Male
  Weight: 81.63 kg

DRUGS (15)
  1. LANTUS SOLOSTAR [Concomitant]
     Active Substance: INSULIN GLARGINE
     Indication: TYPE 2 DIABETES MELLITUS
  2. VITAMIN D [Concomitant]
     Active Substance: VITAMIN D NOS
     Indication: VITAMIN D DEFICIENCY
     Dosage: 2000 IU, DAILY
     Route: 048
  3. APIDRA SOLOSTAR [Concomitant]
     Active Substance: INSULIN GLULISINE
     Indication: HYPERGLYCAEMIA
  4. MAGNESIUM [Concomitant]
     Active Substance: MAGNESIUM
     Dosage: 500 MG, DAILY
  5. LANTUS SOLOSTAR [Concomitant]
     Active Substance: INSULIN GLARGINE
     Indication: DRUG THERAPY
     Dosage: 12 IU, 1X/DAY [EVERY NIGHT]
  6. LANTUS [Concomitant]
     Active Substance: INSULIN GLARGINE
     Indication: DIABETES MELLITUS
     Dosage: UNK UNK, 1X/DAY (1 SHOT AT NIGHT)
  7. APIDRA [Concomitant]
     Active Substance: INSULIN GLULISINE
     Indication: DIABETES MELLITUS
     Dosage: UNK (3 SHOTS A DAY)
  8. LYRICA [Suspect]
     Active Substance: PREGABALIN
     Dosage: UNK UNK, 3X/DAY
  9. LANTUS SOLOSTAR [Concomitant]
     Active Substance: INSULIN GLARGINE
     Indication: HYPERGLYCAEMIA
  10. LYRICA [Suspect]
     Active Substance: PREGABALIN
     Indication: NEURALGIA
     Dosage: 75 MG, UNK
     Dates: start: 2013
  11. APIDRA SOLOSTAR [Concomitant]
     Active Substance: INSULIN GLULISINE
     Indication: TYPE 2 DIABETES MELLITUS
  12. LYRICA [Suspect]
     Active Substance: PREGABALIN
     Indication: NEURALGIA
     Dosage: 100 MG, 2X/DAY
  13. LYRICA [Suspect]
     Active Substance: PREGABALIN
     Indication: DIABETIC NEPHROPATHY
     Dosage: 75 MG, 2X/DAY
     Route: 048
     Dates: start: 201503, end: 201503
  14. LYRICA [Suspect]
     Active Substance: PREGABALIN
     Indication: NEUROPATHY PERIPHERAL
     Dosage: 100 MG, UNK
  15. APIDRA SOLOSTAR [Concomitant]
     Active Substance: INSULIN GLULISINE
     Indication: DRUG THERAPY
     Dosage: 100 UNIT/ML; SIG: 5-5-5 UNITS TID

REACTIONS (4)
  - Foot fracture [Recovering/Resolving]
  - Therapeutic product effect incomplete [Recovered/Resolved]
  - Intentional product misuse [Unknown]
  - Impaired healing [Unknown]

NARRATIVE: CASE EVENT DATE: 201503
